FAERS Safety Report 10150083 (Version 1)
Quarter: 2014Q2

REPORT INFORMATION
  Report Type: Spontaneous
  Country: US (occurrence: US)
  Receive Date: 20140502
  Receipt Date: 20140502
  Transmission Date: 20141212
  Serious: Yes (Other)
  Sender: FDA-Public Use
  Company Number: US-TEVA-479399USA

PATIENT
  Age: 35 Year
  Sex: Female

DRUGS (2)
  1. PARAGARD 380A [Suspect]
     Indication: CONTRACEPTION
     Route: 015
     Dates: start: 20140211
  2. LEXAPRO [Concomitant]
     Indication: DEPRESSION

REACTIONS (2)
  - Device dislocation [Not Recovered/Not Resolved]
  - Pelvic pain [Unknown]
